FAERS Safety Report 4426210-5 (Version None)
Quarter: 2004Q3

REPORT INFORMATION
  Report Type: 
  Country: None (occurrence: None)
  Receive Date: 20040811
  Receipt Date: 20040723
  Transmission Date: 20050211
  Serious: Yes (Other)
  Sender: FDA-Public Use
  Company Number: US_0407104472

PATIENT
  Sex: Male

DRUGS (2)
  1. GEMCITABINE HYDROCHLORIDE-IV (GEMCITABINE) [Suspect]
     Indication: BLADDER CANCER
     Dosage: 10 MG/M2 OTHER
     Route: 050
  2. RADIATION [Suspect]
     Indication: BLADDER CANCER
     Dosage: 2 GRAY OTHER
     Route: 050

REACTIONS (2)
  - CYSTITIS HAEMORRHAGIC [None]
  - CYSTITIS RADIATION [None]
